FAERS Safety Report 6425730-1 (Version None)
Quarter: 2009Q4

REPORT INFORMATION
  Report Type: 
  Country: None (occurrence: None)
  Receive Date: 20091103
  Receipt Date: 20091025
  Transmission Date: 20100525
  Serious: Yes (Hospitalization, Other)
  Sender: FDA-Public Use
  Company Number: PHHY2009IL41180

PATIENT
  Age: 33 Year
  Sex: Female
  Weight: 52 kg

DRUGS (9)
  1. EXJADE [Suspect]
     Indication: THALASSAEMIA BETA
     Dosage: 2000MG/ DAY
     Route: 048
     Dates: start: 20061201
  2. EXJADE [Suspect]
     Dosage: 30 MG/KG DAILY
     Route: 048
     Dates: start: 20070301, end: 20080501
  3. EXJADE [Suspect]
     Dosage: 40 MG/KG
     Route: 048
     Dates: start: 20080501
  4. EXJADE [Suspect]
     Dosage: 30 MG/KG / DAY
     Route: 048
     Dates: start: 20090501, end: 20000101
  5. EXJADE [Suspect]
     Dosage: 38.5 MG/ KG (2000 MG)
     Route: 048
     Dates: start: 20090514, end: 20090901
  6. AMOXICILLIN [Concomitant]
     Route: 048
  7. PROGESTERONE [Concomitant]
     Route: 048
  8. CALCIUM [Concomitant]
     Route: 048
  9. VITAMIN D3 [Concomitant]
     Route: 048

REACTIONS (8)
  - BLOOD PHOSPHORUS DECREASED [None]
  - BLOOD POTASSIUM DECREASED [None]
  - FANCONI SYNDROME [None]
  - HAEMOGLOBIN DECREASED [None]
  - HYPOCALCAEMIA [None]
  - HYPOTENSION [None]
  - RENAL TUBULAR ACIDOSIS [None]
  - URINARY TRACT INFECTION [None]
